FAERS Safety Report 25905095 (Version 1)
Quarter: 2025Q4

REPORT INFORMATION
  Report Type: Report from Study
  Country: US (occurrence: US)
  Receive Date: 20251010
  Receipt Date: 20251010
  Transmission Date: 20260118
  Serious: Yes (Hospitalization)
  Sender: GILEAD
  Company Number: US-GILEAD-2025-0731199

PATIENT
  Age: 23 Year
  Sex: Male

DRUGS (16)
  1. AZTREONAM LYSINE [Suspect]
     Active Substance: AZTREONAM LYSINE
     Indication: Cystic fibrosis
     Dosage: 75 MG, TID
     Route: 055
     Dates: start: 20230317
  2. ADVAIR HFA [Concomitant]
     Active Substance: FLUTICASONE PROPIONATE\SALMETEROL XINAFOATE
  3. CETIRIZINE [Concomitant]
     Active Substance: CETIRIZINE HYDROCHLORIDE
  4. FLUTICASONE [Concomitant]
     Active Substance: FLUTICASONE
  5. GLYCOPYRROLATE [Concomitant]
     Active Substance: GLYCOPYRROLATE
  6. HYDROCORTISONE [Concomitant]
     Active Substance: HYDROCORTISONE
  7. IPRATROPIUM [Concomitant]
     Active Substance: IPRATROPIUM
  8. LEVALBUTEROL [Concomitant]
     Active Substance: LEVALBUTEROL
  9. OMEPRAZOLE [Concomitant]
     Active Substance: OMEPRAZOLE
  10. DEXTROSE\ELECTROLYTES NOS [Concomitant]
     Active Substance: DEXTROSE\ELECTROLYTES NOS
  11. TOBRAMYCIN SULFATE [Concomitant]
     Active Substance: TOBRAMYCIN SULFATE
  12. TRETINOIN [Concomitant]
     Active Substance: TRETINOIN
  13. TRIAMCINOLONE [Concomitant]
     Active Substance: TRIAMCINOLONE
  14. PHENOBARBITAL [Concomitant]
     Active Substance: PHENOBARBITAL
  15. POLYETHYLENE GLYCOLS [Concomitant]
     Active Substance: POLYETHYLENE GLYCOLS
  16. MAPAP [Concomitant]
     Active Substance: ACETAMINOPHEN

REACTIONS (2)
  - Respiratory tract infection [Unknown]
  - Intentional dose omission [Unknown]

NARRATIVE: CASE EVENT DATE: 20250915
